FAERS Safety Report 11623844 (Version 1)
Quarter: 2015Q4

REPORT INFORMATION
  Report Type: Spontaneous
  Country: US (occurrence: US)
  Receive Date: 20151013
  Receipt Date: 20151013
  Transmission Date: 20160304
  Serious: No
  Sender: FDA-Public Use
  Company Number: US-JNJFOC-20150421597

PATIENT
  Sex: Male

DRUGS (2)
  1. TYLENOL [Suspect]
     Active Substance: ACETAMINOPHEN
     Route: 065
  2. TYLENOL [Suspect]
     Active Substance: ACETAMINOPHEN
     Indication: BACK PAIN
     Route: 065
     Dates: start: 20110809

REACTIONS (6)
  - Fatigue [Unknown]
  - Arthralgia [Unknown]
  - Vision blurred [Unknown]
  - Abdominal pain [Unknown]
  - Tendon pain [Unknown]
  - Liver tenderness [Unknown]
